FAERS Safety Report 10041448 (Version 1)
Quarter: 2014Q1

REPORT INFORMATION
  Report Type: Spontaneous
  Country: US (occurrence: None)
  Receive Date: 20140326
  Receipt Date: 20140326
  Transmission Date: 20141002
  Serious: Yes (Hospitalization)
  Sender: FDA-Public Use
  Company Number: None

PATIENT
  Age: 54 Year
  Sex: Female

DRUGS (5)
  1. ONFI [Suspect]
     Indication: CONVULSION
     Dosage: 1 TABLET
     Route: 048
  2. OXCARBAZEPINE [Concomitant]
  3. RUFINAMIDE [Concomitant]
  4. TOPIRAMATE [Concomitant]
  5. CLOBAZAM [Concomitant]

REACTIONS (3)
  - Unresponsive to stimuli [None]
  - Bradycardia [None]
  - Hypotension [None]
